FAERS Safety Report 9331725 (Version 1)
Quarter: 2013Q2

REPORT INFORMATION
  Report Type: Spontaneous
  Country: US (occurrence: None)
  Receive Date: 20130523
  Receipt Date: 20130523
  Transmission Date: 20140414
  Serious: Yes (Other)
  Sender: FDA-Public Use
  Company Number: 2013PROUSA02817

PATIENT
  Age: 71 Year
  Sex: 0
  Weight: 88.9 kg

DRUGS (9)
  1. PROVENGE (SIPULEUCEL-T) SUSPENSION, 250ML [Suspect]
     Indication: PROSTATE CANCER METASTATIC
     Dosage: SINGLE
     Route: 042
     Dates: start: 20130415, end: 20130415
  2. ARICEPT )DONEPEZIL HYDROCHLORIDE) [Concomitant]
  3. ALTACE (RAMIPRIL) [Concomitant]
  4. COREG (CARVEDILOL) [Concomitant]
  5. GABAPENTIN (GABAPENTIN) [Concomitant]
  6. NIASPAN (NICOTINIC ACID) [Concomitant]
  7. ASA (ACETYLSALICYLIC ACID) [Concomitant]
  8. ZOCOR (SIMVASTATIN) [Concomitant]
  9. LUMIGAN (BIMATOPROST) [Concomitant]

REACTIONS (1)
  - Thrombosis [None]
